FAERS Safety Report 18014092 (Version 1)
Quarter: 2020Q3

REPORT INFORMATION
  Report Type: Report from Study
  Country: IN (occurrence: IN)
  Receive Date: 20200713
  Receipt Date: 20200713
  Transmission Date: 20201103
  Serious: Yes (Other)
  Sender: FDA-Public Use
  Company Number: NVSC2020IN195372

PATIENT
  Age: 35 Year
  Sex: Male
  Weight: 88 kg

DRUGS (1)
  1. GALVUS MET [Suspect]
     Active Substance: METFORMIN HYDROCHLORIDE\VILDAGLIPTIN
     Indication: DIABETES MELLITUS
     Dosage: UNK, BID (STARTED SINCE 1 YEAR)
     Route: 048

REACTIONS (2)
  - Myocardial infarction [Unknown]
  - Vein collapse [Unknown]
